FAERS Safety Report 16934847 (Version 1)
Quarter: 2019Q4

REPORT INFORMATION
  Report Type: Spontaneous
  Country: US (occurrence: US)
  Receive Date: 20191018
  Receipt Date: 20191018
  Transmission Date: 20200122
  Serious: Yes (Life-Threatening)
  Sender: FDA-Public Use
  Company Number: None

PATIENT
  Age: 46 Year
  Sex: Female
  Weight: 92.25 kg

DRUGS (2)
  1. PHENTERMINE. [Concomitant]
     Active Substance: PHENTERMINE
  2. BENZOYL PEROXIDE. [Suspect]
     Active Substance: BENZOYL PEROXIDE
     Indication: ACNE
     Route: 061
     Dates: start: 20191017, end: 20191017

REACTIONS (8)
  - Application site pain [None]
  - Throat irritation [None]
  - Ear pruritus [None]
  - Application site erythema [None]
  - Hypoaesthesia [None]
  - Application site papules [None]
  - Application site warmth [None]
  - Pruritus [None]

NARRATIVE: CASE EVENT DATE: 20191017
